FAERS Safety Report 21755637 (Version 1)
Quarter: 2022Q4

REPORT INFORMATION
  Report Type: Spontaneous
  Country: US (occurrence: None)
  Receive Date: 20221220
  Receipt Date: 20221220
  Transmission Date: 20230113
  Serious: Yes (Other)
  Sender: FDA-Public Use
  Company Number: None

PATIENT
  Age: 37 Year
  Sex: Female
  Weight: 54 kg

DRUGS (4)
  1. AVSOLA [Suspect]
     Active Substance: INFLIXIMAB-AXXQ
     Indication: Psoriatic arthropathy
     Dates: start: 20220925, end: 20221220
  2. 5mg lexapro [Concomitant]
  3. 30mg adderal 2x daily [Concomitant]
  4. Daily vitamin for women [Concomitant]

REACTIONS (6)
  - Hypoaesthesia oral [None]
  - Dysphagia [None]
  - Dizziness [None]
  - Palpitations [None]
  - Throat tightness [None]
  - Dyspnoea [None]

NARRATIVE: CASE EVENT DATE: 20221220
